FAERS Safety Report 21605356 (Version 1)
Quarter: 2022Q4

REPORT INFORMATION
  Report Type: Other
  Country: US (occurrence: None)
  Receive Date: 20221116
  Receipt Date: 20221116
  Transmission Date: 20230113
  Serious: Yes (Other)
  Sender: FDA-Public Use
  Company Number: US-ROCHE-3217629

PATIENT
  Age: 36 Year
  Sex: Female

DRUGS (2)
  1. XOLAIR [Suspect]
     Active Substance: OMALIZUMAB
     Indication: Idiopathic urticaria
     Route: 058
  2. XOLAIR [Suspect]
     Active Substance: OMALIZUMAB

REACTIONS (8)
  - Anaphylactic reaction [Not Recovered/Not Resolved]
  - Throat tightness [Not Recovered/Not Resolved]
  - Renal impairment [Not Recovered/Not Resolved]
  - Urticaria [Not Recovered/Not Resolved]
  - Hunger [Not Recovered/Not Resolved]
  - Product dose omission issue [Unknown]
  - Therapeutic response shortened [Unknown]
  - Therapeutic response unexpected [Unknown]
